FAERS Safety Report 8061028 (Version 3)
Quarter: 2014Q1

REPORT INFORMATION
  Report Type: Report from Study
  Country: DE (occurrence: DE)
  Receive Date: 20110729
  Receipt Date: 20140327
  Transmission Date: 20141002
  Serious: Yes (Other)
  Sender: FDA-Public Use
  Company Number: DE-UCBSA-019643

PATIENT
  Sex: Female

DRUGS (8)
  1. CIMZIA [Suspect]
     Indication: RHEUMATOID ARTHRITIS
     Route: 058
     Dates: start: 20100701, end: 201009
  2. ARAVA [Concomitant]
     Indication: POLYARTHRITIS
     Route: 048
     Dates: start: 20000701
  3. DECORTIN [Concomitant]
     Indication: POLYARTHRITIS
     Route: 048
     Dates: start: 20000101
  4. DECORTIN [Concomitant]
     Indication: RHEUMATOID ARTHRITIS
     Route: 048
     Dates: start: 20000101
  5. DECORTIN [Concomitant]
     Indication: POLYARTHRITIS
     Dates: start: 20100618, end: 20100823
  6. DECORTIN [Concomitant]
     Indication: RHEUMATOID ARTHRITIS
     Dates: start: 20100618, end: 20100823
  7. DECORTIN [Concomitant]
     Indication: POLYARTHRITIS
     Dates: start: 20100824
  8. DECORTIN [Concomitant]
     Indication: RHEUMATOID ARTHRITIS
     Dates: start: 20100824

REACTIONS (1)
  - Psoriasis [Not Recovered/Not Resolved]
